FAERS Safety Report 22642330 (Version 6)
Quarter: 2024Q1

REPORT INFORMATION
  Report Type: Spontaneous
  Country: US (occurrence: US)
  Receive Date: 20230626
  Receipt Date: 20240326
  Transmission Date: 20240410
  Serious: Yes (Disabling, Other)
  Sender: FDA-Public Use
  Company Number: US-HORIZON THERAPEUTICS-HZN-2023-004759

PATIENT

DRUGS (18)
  1. TEPEZZA [Suspect]
     Active Substance: TEPROTUMUMAB-TRBW
     Indication: Graves^ disease
     Dosage: FIRST INFUSION
     Route: 042
     Dates: start: 2020
  2. TEPEZZA [Suspect]
     Active Substance: TEPROTUMUMAB-TRBW
     Dosage: UNK
     Route: 042
     Dates: start: 20210923
  3. ALBUTEROL SULFATE [Concomitant]
     Active Substance: ALBUTEROL SULFATE
     Indication: Wheezing
     Dosage: 2 PUFF, INHALE 2 PUFFS INTO THE LUNGS EVERY 6 (SIX) HOURS AS NEEDED
     Dates: start: 20210214, end: 20210524
  4. AMITRIPTYLINE HYDROCHLORIDE [Concomitant]
     Active Substance: AMITRIPTYLINE HYDROCHLORIDE
     Dosage: 50 MG, TAKE 1 TABLET (50 MG TOTAL) BY MOUTH NIGHTLY AT BEDTIME
     Route: 048
     Dates: start: 20210214, end: 20210816
  5. BACLOFEN [Concomitant]
     Active Substance: BACLOFEN
     Dosage: 10 MG, DAILY
     Route: 048
     Dates: start: 20201123, end: 20210420
  6. BUSPIRONE HCL [Concomitant]
     Active Substance: BUSPIRONE HYDROCHLORIDE
     Dosage: 30 MG, BID
     Route: 048
     Dates: start: 20210214, end: 20210616
  7. CETIRIZINE HYDROCHLORIDE [Concomitant]
     Active Substance: CETIRIZINE HYDROCHLORIDE
     Dosage: 10 MG, DAILY
     Route: 048
     Dates: start: 20180425, end: 20220427
  8. FLUOXETINE [Concomitant]
     Active Substance: FLUOXETINE HYDROCHLORIDE
     Dosage: 20 MG, DAILY
     Route: 048
     Dates: start: 20210312, end: 20210419
  9. FLUTICASONE PROPIONATE [Concomitant]
     Active Substance: FLUTICASONE PROPIONATE
     Dosage: UNK, 2 SPRAY IN EACH NOSTRIL DAILY
     Dates: start: 20210214, end: 20210616
  10. GABAPENTIN [Concomitant]
     Active Substance: GABAPENTIN
     Dosage: 600 MG, TID
     Route: 048
     Dates: start: 20210301, end: 20210805
  11. METHIMAZOLE [Concomitant]
     Active Substance: METHIMAZOLE
     Dosage: 30 MG, DAILY
     Route: 048
     Dates: start: 20201123, end: 20210420
  12. DULERA [Concomitant]
     Active Substance: FORMOTEROL FUMARATE DIHYDRATE\MOMETASONE FUROATE
     Dosage: 1 PUFF, BID (INHALE 1 PUFF INTO THE LUNGS 2 (TWO) TIMES A DAY)
     Dates: start: 20210214, end: 20210607
  13. MONTELUKAST [Concomitant]
     Active Substance: MONTELUKAST SODIUM
     Dosage: 10 MG, DAILY
     Route: 048
     Dates: start: 20210214, end: 20220218
  14. FOLIC ACID\VITAMINS [Concomitant]
     Active Substance: FOLIC ACID\VITAMINS
  15. OMEPRAZOLE [Concomitant]
     Active Substance: OMEPRAZOLE
     Dosage: 40 MG, DAILY
     Route: 048
     Dates: start: 20210214, end: 20220324
  16. RIZATRIPTAN [Concomitant]
     Active Substance: RIZATRIPTAN
     Dosage: 10 MG, REPEAT IN 2 HOURS IF NEEDED TIMES ONE DOSE
     Dates: start: 20210214, end: 20220324
  17. SELENIUM [Concomitant]
     Active Substance: SELENIUM
  18. VALACYCLOVIR [Concomitant]
     Active Substance: VALACYCLOVIR HYDROCHLORIDE
     Dosage: 500 MG, DAILY
     Route: 048
     Dates: start: 20210214, end: 20220324

REACTIONS (37)
  - Deafness permanent [Not Recovered/Not Resolved]
  - Physical disability [Unknown]
  - Disability [Not Recovered/Not Resolved]
  - Suicidal ideation [Unknown]
  - Deformity [Unknown]
  - Anxiety [Not Recovered/Not Resolved]
  - Concomitant disease aggravated [Not Recovered/Not Resolved]
  - Pain [Not Recovered/Not Resolved]
  - Injury [Not Recovered/Not Resolved]
  - Emotional distress [Not Recovered/Not Resolved]
  - Impaired quality of life [Not Recovered/Not Resolved]
  - Discomfort [Not Recovered/Not Resolved]
  - Auditory disorder [Not Recovered/Not Resolved]
  - Abdominal discomfort [Unknown]
  - Tooth disorder [Unknown]
  - Drug ineffective [Unknown]
  - Tinnitus [Not Recovered/Not Resolved]
  - Nausea [Unknown]
  - Diarrhoea [Unknown]
  - Headache [Unknown]
  - Product quality issue [Not Recovered/Not Resolved]
  - Economic problem [Not Recovered/Not Resolved]
  - Blood sodium decreased [Recovered/Resolved]
  - Diplopia [Unknown]
  - Photophobia [Unknown]
  - Eye pain [Unknown]
  - Osteoarthritis [Unknown]
  - Arthralgia [Unknown]
  - Condition aggravated [Unknown]
  - Musculoskeletal stiffness [Unknown]
  - Gait disturbance [Unknown]
  - Balance disorder [Unknown]
  - Middle insomnia [Unknown]
  - Sacroiliac joint dysfunction [Unknown]
  - Herpes simplex [Unknown]
  - Exostosis [Unknown]
  - Osteosclerosis [Unknown]

NARRATIVE: CASE EVENT DATE: 20210101
